FAERS Safety Report 5184730-2 (Version None)
Quarter: 2006Q4

REPORT INFORMATION
  Report Type: 
  Country: None (occurrence: None)
  Receive Date: 20061220
  Receipt Date: 20060418
  Transmission Date: 20070319
  Serious: No
  Sender: FDA-Public Use
  Company Number: US-GLAXOSMITHKLINE-A0602258A

PATIENT
  Age: 58 Year
  Sex: Male

DRUGS (3)
  1. NICODERM CQ [Suspect]
     Dates: start: 20060409
  2. COMMIT [Suspect]
     Dates: start: 20060409
  3. COMMIT [Suspect]
     Dates: start: 20060409

REACTIONS (2)
  - ERYTHEMA [None]
  - INTENTIONAL DRUG MISUSE [None]
